FAERS Safety Report 10150126 (Version 1)
Quarter: 2014Q2

REPORT INFORMATION
  Report Type: Spontaneous
  Country: CA (occurrence: CA)
  Receive Date: 20140502
  Receipt Date: 20140502
  Transmission Date: 20141212
  Serious: Yes (Other)
  Sender: FDA-Public Use
  Company Number: CA-ASTRAZENECA-2014SE28671

PATIENT
  Age: 17 Year
  Sex: Female

DRUGS (2)
  1. SEROQUEL [Suspect]
     Route: 048
     Dates: start: 201110
  2. LINESSA [Concomitant]
     Indication: ORAL CONTRACEPTION
     Dosage: ONCE DAILY
     Route: 048

REACTIONS (1)
  - Breast discharge [Not Recovered/Not Resolved]
